FAERS Safety Report 6025441-0 (Version None)
Quarter: 2008Q4

REPORT INFORMATION
  Report Type: 
  Country: None (occurrence: None)
  Receive Date: 20081231
  Receipt Date: 20080812
  Transmission Date: 20090506
  Serious: Yes (Other)
  Sender: FDA-Public Use
  Company Number: AU-SANOFI-SYNTHELABO-A01200805598

PATIENT
  Sex: Female

DRUGS (26)
  1. OMEPRAZOLE [Concomitant]
     Indication: GASTROOESOPHAGEAL REFLUX DISEASE
     Dosage: UNK
     Route: 065
  2. VITAMIN D [Concomitant]
     Indication: DRUG USE FOR UNKNOWN INDICATION
     Dosage: UNK
     Route: 065
  3. ATACAND [Concomitant]
     Indication: DRUG USE FOR UNKNOWN INDICATION
     Route: 065
  4. AROPAX [Concomitant]
     Indication: DRUG USE FOR UNKNOWN INDICATION
     Route: 065
  5. SERETIDE [Concomitant]
     Dosage: UNK
     Route: 065
  6. INTAGRAM [Concomitant]
     Dosage: UNK
     Route: 065
  7. PREDNISOLONE [Concomitant]
     Indication: ADDISON'S DISEASE
     Dosage: 10 MG
     Route: 048
     Dates: start: 19990101
  8. ENSURE PLUS [Concomitant]
     Indication: DRUG USE FOR UNKNOWN INDICATION
     Dosage: UNK
     Route: 065
  9. VOLTAREN GEL [Concomitant]
     Indication: DRUG USE FOR UNKNOWN INDICATION
     Dosage: UNK
     Route: 065
  10. QUINBISUL [Concomitant]
     Indication: DRUG USE FOR UNKNOWN INDICATION
     Route: 065
     Dates: start: 20040225
  11. NOROXIN [Concomitant]
     Indication: DRUG USE FOR UNKNOWN INDICATION
     Route: 065
     Dates: start: 20040225
  12. CHLOROMYCETIN [Concomitant]
     Indication: DRUG USE FOR UNKNOWN INDICATION
     Dosage: UNK
     Route: 065
  13. PREDNISOLONE SODIUM PHOSPHATE [Concomitant]
     Indication: DRUG USE FOR UNKNOWN INDICATION
     Route: 065
  14. SONE [Concomitant]
     Indication: DRUG USE FOR UNKNOWN INDICATION
     Route: 065
     Dates: start: 20031204
  15. LIVIAL [Concomitant]
     Indication: DRUG USE FOR UNKNOWN INDICATION
     Route: 065
     Dates: start: 20031204
  16. SYMBICORT INHALATION [Concomitant]
     Indication: DRUG USE FOR UNKNOWN INDICATION
     Dosage: 200/6 120 DOSE
     Route: 065
     Dates: start: 20031204
  17. TEMAZE [Concomitant]
     Indication: DRUG USE FOR UNKNOWN INDICATION
     Route: 065
     Dates: start: 20031202
  18. LASONIL [Concomitant]
     Indication: DRUG USE FOR UNKNOWN INDICATION
     Dosage: UNK
     Route: 065
     Dates: start: 20031119
  19. ELEUPHRAT [Concomitant]
     Indication: DRUG USE FOR UNKNOWN INDICATION
     Dosage: 0.5MG, THEN 1G, THEN 15 G
     Route: 065
  20. KENACOMB OINTMENT [Concomitant]
     Indication: DRUG USE FOR UNKNOWN INDICATION
     Route: 061
  21. ACTONEL [Suspect]
     Indication: DRUG USE FOR UNKNOWN INDICATION
     Route: 065
     Dates: start: 20050516
  22. KARVEZIDE [Suspect]
     Indication: DRUG USE FOR UNKNOWN INDICATION
     Route: 065
     Dates: start: 20031204
  23. RULIDE [Suspect]
     Indication: LOCALISED INFECTION
     Route: 065
     Dates: start: 20030906
  24. ACETAMINOPHEN W/ CODEINE [Suspect]
     Indication: DRUG USE FOR UNKNOWN INDICATION
     Dosage: UNK
     Route: 065
     Dates: start: 20040127
  25. STILNOX [Suspect]
     Indication: INSOMNIA
     Route: 048
  26. STILNOX [Suspect]
     Route: 048

REACTIONS (11)
  - DEPRESSED LEVEL OF CONSCIOUSNESS [None]
  - DRUG INEFFECTIVE [None]
  - FALL [None]
  - INCORRECT DRUG ADMINISTRATION DURATION [None]
  - PAIN [None]
  - SEPTIC ARTHRITIS STAPHYLOCOCCAL [None]
  - SLEEP-RELATED EATING DISORDER [None]
  - STAPHYLOCOCCAL OSTEOMYELITIS [None]
  - STRESS [None]
  - ULNA FRACTURE [None]
  - UPPER LIMB FRACTURE [None]
